FAERS Safety Report 5513094-7 (Version None)
Quarter: 2007Q4

REPORT INFORMATION
  Report Type: 
  Country: None (occurrence: None)
  Receive Date: 20071108
  Receipt Date: 20071024
  Transmission Date: 20080405
  Serious: Yes (Hospitalization)
  Sender: FDA-Public Use
  Company Number: JPKYO-L-20070002

PATIENT
  Age: 73 Year
  Sex: Male

DRUGS (8)
  1. NAVELBINE [Suspect]
     Indication: PLEURAL MESOTHELIOMA
     Dosage: 0 MG QD IV
     Route: 042
     Dates: start: 20050822, end: 20051101
  2. GEMZAR [Suspect]
     Indication: PLEURAL MESOTHELIOMA
     Dosage: 0 MG QD PO
     Route: 048
     Dates: start: 20050822, end: 20051101
  3. NASEA [Concomitant]
  4. LOXONIN [Concomitant]
  5. CYTOTEC [Concomitant]
  6. FAMOTIDINE [Concomitant]
  7. HARNAL [Concomitant]
  8. CLEANAL [Concomitant]

REACTIONS (5)
  - COUGH [None]
  - HYPOXIA [None]
  - LUNG DISORDER [None]
  - LUNG INFILTRATION [None]
  - PYREXIA [None]
